FAERS Safety Report 9024327 (Version 1)
Quarter: 2013Q1

REPORT INFORMATION
  Report Type: Spontaneous
  Country: JP (occurrence: JP)
  Receive Date: 20130121
  Receipt Date: 20130121
  Transmission Date: 20140127
  Serious: Yes (Other)
  Sender: FDA-Public Use
  Company Number: PHHY2013JP004787

PATIENT
  Sex: 0

DRUGS (3)
  1. TEGRETOL [Suspect]
     Indication: CONVULSION
     Route: 048
  2. GLUFAST [Concomitant]
     Indication: DIABETES MELLITUS
     Route: 048
  3. SODIUM VALPROATE [Concomitant]
     Indication: CONVULSION
     Route: 048

REACTIONS (2)
  - Diabetes mellitus inadequate control [Unknown]
  - Blood creatinine increased [Unknown]
